FAERS Safety Report 15082059 (Version 1)
Quarter: 2018Q2

REPORT INFORMATION
  Report Type: Spontaneous
  Country: US (occurrence: US)
  Receive Date: 20180628
  Receipt Date: 20180628
  Transmission Date: 20180711
  Serious: No
  Sender: FDA-Public Use
  Company Number: US-009507513-1806USA004880

PATIENT
  Age: 21 Year
  Sex: Female
  Weight: 77.1 kg

DRUGS (2)
  1. NEXPLANON [Suspect]
     Active Substance: ETONOGESTREL
     Indication: CONTRACEPTION
     Dosage: UNK, EVERY 3 YEARS
     Route: 059
     Dates: start: 20170830
  2. IBUPROFEN. [Concomitant]
     Active Substance: IBUPROFEN
     Dosage: UNK, AS NEEDED, PRN

REACTIONS (10)
  - Peripheral swelling [Unknown]
  - Uterine pain [Unknown]
  - Apathy [Unknown]
  - Headache [Unknown]
  - Menstruation delayed [Recovered/Resolved]
  - Mood altered [Unknown]
  - Contusion [Unknown]
  - Mood swings [Unknown]
  - Pain in extremity [Unknown]
  - Menometrorrhagia [Unknown]

NARRATIVE: CASE EVENT DATE: 20170830
